FAERS Safety Report 9704523 (Version 1)
Quarter: 2013Q4

REPORT INFORMATION
  Report Type: Spontaneous
  Country: US (occurrence: None)
  Receive Date: 20131121
  Receipt Date: 20131121
  Transmission Date: 20140711
  Serious: No
  Sender: FDA-Public Use
  Company Number: None

PATIENT
  Age: 72 Year
  Sex: Female

DRUGS (13)
  1. DIGOXIN [Suspect]
     Indication: ARRHYTHMIA
     Route: 048
     Dates: start: 20131026
  2. CEPHALEXIN [Concomitant]
  3. DILTIAZEM [Concomitant]
  4. SULFAMETHOXAZOLE [Concomitant]
  5. MODAFINIL [Concomitant]
  6. TRIAMCINOLONE [Concomitant]
  7. DOC Q LACE [Concomitant]
  8. FUROSEMIDE [Concomitant]
  9. TRAZODONE [Concomitant]
  10. ADVAIR DISKUS [Concomitant]
  11. SERTRALINE [Concomitant]
  12. SIMVASTATIN [Concomitant]
  13. LISINOPRIL [Concomitant]

REACTIONS (1)
  - Nausea [None]
